FAERS Safety Report 9950553 (Version 1)
Quarter: 2014Q1

REPORT INFORMATION
  Report Type: Report from Study
  Country: US (occurrence: US)
  Receive Date: 20140304
  Receipt Date: 20140304
  Transmission Date: 20141002
  Serious: No
  Sender: FDA-Public Use
  Company Number: US-ABBVIE-13P-163-1072132-00

PATIENT
  Age: 53 Year
  Sex: Female

DRUGS (15)
  1. HUMIRA [Suspect]
     Indication: RHEUMATOID ARTHRITIS
     Dates: start: 20121214
  2. PRILOSEC [Concomitant]
     Indication: DYSPEPSIA
  3. ADVAIR [Concomitant]
     Indication: ASTHMA
     Dosage: 100/50
  4. XYZAL [Concomitant]
     Indication: HYPERSENSITIVITY
     Dosage: IN THE EVENING
  5. WELLBUTRIN [Concomitant]
     Indication: ANXIETY
  6. VICODIN [Concomitant]
     Indication: PAIN
     Dosage: 7.5-200MG, AS NEEDED
  7. MULTIVITAMIN [Concomitant]
     Indication: PRODUCT USED FOR UNKNOWN INDICATION
     Dosage: DAILY
  8. CALCIUM WITH VITAMIN D [Concomitant]
     Indication: PRODUCT USED FOR UNKNOWN INDICATION
  9. MAGNESIUM [Concomitant]
     Indication: PRODUCT USED FOR UNKNOWN INDICATION
  10. CHLORELLA [Concomitant]
     Indication: PRODUCT USED FOR UNKNOWN INDICATION
  11. FISH OIL [Concomitant]
     Indication: PRODUCT USED FOR UNKNOWN INDICATION
  12. ESTROVEN [Concomitant]
     Indication: PRODUCT USED FOR UNKNOWN INDICATION
     Dosage: 1 OR 2 DAILY
  13. SUPPLEMENTS [Concomitant]
     Indication: PRODUCT USED FOR UNKNOWN INDICATION
  14. METAXALONE [Concomitant]
     Indication: NERVE COMPRESSION
     Dosage: 2-3 TIMES PER DAY
     Dates: end: 20130401
  15. TIZANIDINE [Concomitant]
     Indication: NERVE COMPRESSION
     Dosage: AT BEDTIME

REACTIONS (1)
  - Urticaria [Not Recovered/Not Resolved]
